FAERS Safety Report 5614506-0 (Version None)
Quarter: 2008Q1

REPORT INFORMATION
  Report Type: 
  Country: None (occurrence: None)
  Receive Date: 20080205
  Receipt Date: 20080130
  Transmission Date: 20080703
  Serious: Yes (Hospitalization)
  Sender: FDA-Public Use
  Company Number: JP-MERCK-0801USA03079

PATIENT
  Age: 53 Year
  Sex: Male

DRUGS (6)
  1. ZETIA [Suspect]
     Indication: HYPERLIPIDAEMIA
     Route: 048
     Dates: start: 20070824
  2. FENOFIBRATE [Concomitant]
     Route: 065
     Dates: start: 20070709
  3. BENIDIPINE HYDROCHLORIDE [Concomitant]
     Route: 065
     Dates: start: 20070606
  4. CANDESARTAN CILEXETIL [Concomitant]
     Route: 065
     Dates: start: 20070619
  5. ACARBOSE [Concomitant]
     Route: 065
     Dates: start: 20070709
  6. DIMETHICONE [Concomitant]
     Route: 065
     Dates: start: 20070925

REACTIONS (1)
  - STEVENS-JOHNSON SYNDROME [None]
